APPROVED DRUG PRODUCT: HALOBETASOL PROPIONATE
Active Ingredient: HALOBETASOL PROPIONATE
Strength: 0.05%
Dosage Form/Route: LOTION;TOPICAL
Application: A211464 | Product #001
Applicant: PADAGIS ISRAEL PHARMACEUTICALS LTD
Approved: Jun 3, 2020 | RLD: No | RS: No | Type: DISCN